FAERS Safety Report 9616877 (Version 2)
Quarter: 2013Q4

REPORT INFORMATION
  Report Type: Report from Study
  Country: US (occurrence: US)
  Receive Date: 20131011
  Receipt Date: 20131011
  Transmission Date: 20140711
  Serious: Yes (Hospitalization)
  Sender: FDA-Public Use
  Company Number: PHHO2011US00579

PATIENT
  Age: 70 Year
  Sex: Male
  Weight: 81.2 kg

DRUGS (12)
  1. BLINDED ACZ885 [Suspect]
     Indication: CARDIOVASCULAR EVENT PROPHYLAXIS
     Dosage: BLINDED
     Route: 058
     Dates: start: 20101001, end: 20110104
  2. BLINDED PLACEBO [Suspect]
     Indication: CARDIOVASCULAR EVENT PROPHYLAXIS
     Dosage: BLINDED
     Route: 058
     Dates: start: 20101001, end: 20110104
  3. ASPIRIN [Concomitant]
     Indication: CORONARY ARTERY DISEASE
     Dosage: UNK
  4. FISH OIL [Concomitant]
     Indication: MEDICAL DIET
     Dosage: UNK
  5. FOLIC ACID [Concomitant]
     Indication: MEDICAL DIET
     Dosage: UNK
  6. LISINOPRIL/HCTZ [Concomitant]
     Indication: HYPERTENSION
     Dosage: UNK
  7. METOPROLOL [Concomitant]
     Indication: HYPERTENSION
     Dosage: UNK
  8. NIASPAN [Concomitant]
     Indication: DYSLIPIDAEMIA
     Dosage: UNK
  9. PLAVIX [Concomitant]
     Indication: CORONARY ARTERY DISEASE
     Dosage: UNK
  10. SIMVASTATIN [Concomitant]
     Indication: DYSLIPIDAEMIA
     Dosage: UNK
  11. EVOXAC [Concomitant]
     Indication: RHEUMATOID ARTHRITIS
     Dosage: UNK
  12. HUMIRA [Concomitant]
     Indication: RHEUMATOID ARTHRITIS

REACTIONS (2)
  - Subdural haematoma [Recovered/Resolved]
  - Fall [Recovered/Resolved]
